FAERS Safety Report 5454364-0 (Version None)
Quarter: 2007Q3

REPORT INFORMATION
  Report Type: 
  Country: None (occurrence: None)
  Receive Date: 20070917
  Receipt Date: 20070330
  Transmission Date: 20080115
  Serious: Yes (Other)
  Sender: FDA-Public Use
  Company Number: US-ASTRAZENECA-2006UW12037

PATIENT
  Sex: Female
  Weight: 72 kg

DRUGS (14)
  1. SEROQUEL [Suspect]
     Indication: SCHIZOPHRENIA
     Route: 048
     Dates: end: 20030101
  2. SEROQUEL [Suspect]
     Indication: BIPOLAR DISORDER
     Route: 048
     Dates: end: 20030101
  3. SEROQUEL [Suspect]
     Indication: DEPRESSION
     Route: 048
     Dates: end: 20030101
  4. ABILIFY [Concomitant]
     Dates: start: 20000101
  5. CLOZARIL [Concomitant]
     Dates: start: 20000101
  6. GEODON [Concomitant]
     Dates: start: 20000101
  7. HALDOL [Concomitant]
     Dates: start: 20000101
  8. NAVANE [Concomitant]
     Dates: start: 20000101
  9. RISPERDAL [Concomitant]
     Dates: start: 20000101
  10. SOLIAN [Concomitant]
  11. STELAZINE [Concomitant]
     Dates: start: 20000101
  12. THORAZINE [Concomitant]
     Dates: start: 20000101
  13. TRILAFON [Concomitant]
     Dates: start: 20000101
  14. ZYPREXA [Concomitant]
     Dates: start: 20000101

REACTIONS (11)
  - BLOOD TRIGLYCERIDES INCREASED [None]
  - DIABETIC KETOACIDOSIS [None]
  - EXTRAPYRAMIDAL DISORDER [None]
  - GESTATIONAL DIABETES [None]
  - HYPERLIPIDAEMIA [None]
  - HYPERPROLACTINAEMIA [None]
  - NEUROLEPTIC MALIGNANT SYNDROME [None]
  - OBESITY [None]
  - PANCREATITIS [None]
  - TARDIVE DYSKINESIA [None]
  - TYPE 2 DIABETES MELLITUS [None]
